FAERS Safety Report 6566512-X (Version None)
Quarter: 2010Q1

REPORT INFORMATION
  Report Type: 
  Country: None (occurrence: None)
  Receive Date: 20100202
  Receipt Date: 20100120
  Transmission Date: 20100710
  Serious: Yes (Hospitalization)
  Sender: FDA-Public Use
  Company Number: PHHY2010FR03328

PATIENT
  Age: 58 Year
  Sex: Male

DRUGS (9)
  1. ZOMETA [Suspect]
     Indication: PROSTATE CANCER
     Dosage: 4 MG, QMO
     Dates: start: 20080701, end: 20091001
  2. TAXOTERE [Concomitant]
     Dosage: UNK
     Dates: start: 20090701
  3. PREVISCAN [Concomitant]
  4. ALDACTONE [Concomitant]
  5. LASILIX [Concomitant]
  6. FLUOXETINE [Concomitant]
  7. MEGAMAG [Concomitant]
  8. PRAZEPAM [Concomitant]
  9. LAROXYL [Concomitant]

REACTIONS (2)
  - ABSCESS JAW [None]
  - OSTEONECROSIS [None]
